FAERS Safety Report 25766240 (Version 1)
Quarter: 2025Q3

REPORT INFORMATION
  Report Type: Report from Study
  Country: US (occurrence: US)
  Receive Date: 20250905
  Receipt Date: 20250905
  Transmission Date: 20251021
  Serious: No
  Sender: SUNOVION
  Company Number: US-SMPA-2025SPA011198

PATIENT
  Age: 73 Year
  Sex: Male

DRUGS (4)
  1. ORGOVYX [Suspect]
     Active Substance: RELUGOLIX
     Indication: Prostate cancer
     Route: 048
     Dates: start: 20250706, end: 20250706
  2. ORGOVYX [Suspect]
     Active Substance: RELUGOLIX
     Route: 048
  3. LUPRON [Suspect]
     Active Substance: LEUPROLIDE ACETATE
     Indication: Product used for unknown indication
  4. NUBEQA [Concomitant]
     Active Substance: DAROLUTAMIDE

REACTIONS (2)
  - Hot flush [Unknown]
  - Constipation [Recovering/Resolving]
